FAERS Safety Report 4704646-2 (Version None)
Quarter: 2005Q2

REPORT INFORMATION
  Report Type: 
  Country: None (occurrence: None)
  Receive Date: 20050630
  Receipt Date: 20050620
  Transmission Date: 20051028
  Serious: Yes (Hospitalization)
  Sender: FDA-Public Use
  Company Number: JP-MERCK-0506USA03426

PATIENT
  Age: 60 Year
  Sex: Female

DRUGS (3)
  1. MENATETRENONE [Concomitant]
     Indication: OSTEOPOROSIS
     Route: 065
  2. FOSAMAX [Suspect]
     Indication: OSTEOPOROSIS
     Route: 048
     Dates: start: 20030101, end: 20050621
  3. CALCIUM LACTATE [Concomitant]
     Indication: OSTEOPOROSIS
     Route: 048

REACTIONS (4)
  - C-REACTIVE PROTEIN INCREASED [None]
  - COUGH [None]
  - INTERSTITIAL LUNG DISEASE [None]
  - PNEUMONIA MYCOPLASMAL [None]
